FAERS Safety Report 21897281 (Version 1)
Quarter: 2023Q1

REPORT INFORMATION
  Report Type: Spontaneous
  Country: US (occurrence: None)
  Receive Date: 20230121
  Receipt Date: 20230121
  Transmission Date: 20230418
  Serious: No
  Sender: FDA-Public Use
  Company Number: None

PATIENT
  Age: 24 Year
  Sex: Female
  Weight: 113.4 kg

DRUGS (1)
  1. EQUATE COOL AND HEAT PAIN RELIEVING LIQUID [Suspect]
     Active Substance: MENTHOL
     Indication: Dysmenorrhoea
     Dosage: OTHER QUANTITY : 2.5 FLUID OUNES;?FREQUENCY : 3 TIMES A DAY;?
     Route: 058
     Dates: start: 20230120, end: 20230120

REACTIONS (5)
  - Application site burn [None]
  - Back pain [None]
  - Arthralgia [None]
  - Bedridden [None]
  - Product substitution issue [None]

NARRATIVE: CASE EVENT DATE: 20230120
